FAERS Safety Report 6091235-3 (Version None)
Quarter: 2009Q1

REPORT INFORMATION
  Report Type: 
  Country: None (occurrence: None)
  Receive Date: 20090220
  Receipt Date: 20090220
  Transmission Date: 20090719
  Serious: No
  Sender: FDA-Public Use
  Company Number: None

PATIENT
  Age: 5 Year
  Sex: Female
  Weight: 21.6819 kg

DRUGS (2)
  1. PULMICORT [Suspect]
     Indication: ASTHMA
     Dosage: 1 RESPULE BID INHAL
     Route: 055
     Dates: start: 20090212, end: 20090219
  2. ALBUTEROL [Suspect]
     Indication: BRONCHITIS CHRONIC
     Dosage: 1 DOSE VIAL AS NEEDED INHAL
     Route: 055
     Dates: start: 20090212, end: 20090219

REACTIONS (3)
  - ABNORMAL BEHAVIOUR [None]
  - AGGRESSION [None]
  - EMOTIONAL DISORDER [None]
